FAERS Safety Report 23084434 (Version 2)
Quarter: 2023Q4

REPORT INFORMATION
  Report Type: Report from Study
  Country: CA (occurrence: CA)
  Receive Date: 20231019
  Receipt Date: 20231113
  Transmission Date: 20240110
  Serious: No
  Sender: FDA-Public Use
  Company Number: CA-AstraZeneca-2023A231910

PATIENT
  Sex: Female
  Weight: 66.5 kg

DRUGS (1)
  1. ENHERTU [Suspect]
     Active Substance: FAM-TRASTUZUMAB DERUXTECAN-NXKI
     Indication: Breast cancer
     Dosage: 356 MG, ONCE EVERY 3 WK
     Route: 042
     Dates: start: 20230829

REACTIONS (3)
  - Oropharyngeal pain [Recovering/Resolving]
  - Device related infection [Unknown]
  - Off label use [Unknown]

NARRATIVE: CASE EVENT DATE: 20230101
